FAERS Safety Report 7343051-X (Version None)
Quarter: 2011Q1

REPORT INFORMATION
  Report Type: 
  Country: None (occurrence: None)
  Receive Date: 20110310
  Receipt Date: 20110307
  Transmission Date: 20110831
  Serious: Yes (Other)
  Sender: FDA-Public Use
  Company Number: DE-ABBOTT-11P-062-0696916-00

PATIENT
  Sex: Female
  Weight: 104 kg

DRUGS (2)
  1. HUMIRA [Suspect]
     Dates: start: 20100815
  2. HUMIRA [Suspect]
     Indication: RHEUMATOID ARTHRITIS
     Dates: end: 20100715

REACTIONS (1)
  - ARTHRODESIS [None]
